FAERS Safety Report 6532793-1 (Version None)
Quarter: 2010Q1

REPORT INFORMATION
  Report Type: 
  Country: None (occurrence: None)
  Receive Date: 20100111
  Receipt Date: 20100107
  Transmission Date: 20100710
  Serious: Yes (Hospitalization)
  Sender: FDA-Public Use
  Company Number: PHHY2009JP59818

PATIENT
  Age: 34 Year
  Sex: Male

DRUGS (4)
  1. VOLTAREN [Suspect]
     Dosage: 450 MG/ DAY
     Route: 048
     Dates: start: 20091222, end: 20091222
  2. LASIX [Concomitant]
     Dosage: 20MG
     Route: 042
     Dates: start: 20091222, end: 20091222
  3. GASTER [Concomitant]
     Dosage: 1 DF, UNK
     Route: 042
     Dates: start: 20091222, end: 20091222
  4. CHLORPHENESIN CARBAMATE BULK-EXPORT [Concomitant]
     Dosage: 2500 MG
     Route: 048
     Dates: start: 20091222, end: 20091222

REACTIONS (2)
  - MUSCLE TWITCHING [None]
  - OVERDOSE [None]
